FAERS Safety Report 9145361 (Version 1)
Quarter: 2013Q1

REPORT INFORMATION
  Report Type: Spontaneous
  Country: BR (occurrence: BR)
  Receive Date: 20130307
  Receipt Date: 20130307
  Transmission Date: 20140127
  Serious: Yes (Other)
  Sender: FDA-Public Use
  Company Number: BR-ACCORD-016660

PATIENT
  Age: 42 Year
  Sex: Female
  Weight: 68.2 kg

DRUGS (8)
  1. PACLITAXEL [Suspect]
     Indication: BREAST CANCER
     Route: 042
     Dates: start: 20121226
  2. DEXAMETHASONE [Concomitant]
     Route: 048
     Dates: start: 20121211
  3. NIMESULIDE [Concomitant]
     Dosage: DOMICILIARY USE
     Route: 048
     Dates: start: 20121211
  4. DIPHENHYDRAMINE [Concomitant]
     Route: 042
     Dates: start: 20130116, end: 20130116
  5. RANITIDINE [Concomitant]
     Route: 042
     Dates: start: 20130116, end: 20130116
  6. DEXAMETHASONE [Concomitant]
     Route: 042
     Dates: start: 20130116, end: 20130116
  7. HYDROCORTISONE [Concomitant]
     Route: 042
     Dates: start: 20130116, end: 20130116
  8. NAUSEDRON [Concomitant]
     Route: 042
     Dates: start: 20130116, end: 20130116

REACTIONS (4)
  - Dyspnoea [Recovered/Resolved]
  - Hypertension [Recovered/Resolved]
  - Erythema [Recovered/Resolved]
  - Malaise [Recovered/Resolved]
